FAERS Safety Report 8522498-X (Version None)
Quarter: 2012Q3

REPORT INFORMATION
  Report Type: 
  Country: None (occurrence: None)
  Receive Date: 20120706
  Receipt Date: 20120627
  Transmission Date: 20120928
  Serious: Yes (Death, Hospitalization, Other)
  Sender: FDA-Public Use
  Company Number: ADR-2012-01150

PATIENT
  Age: 73 Year
  Sex: Male

DRUGS (2)
  1. BACLOFEN [Suspect]
     Dosage: SEE B5
  2. ARICEPT TABLETS, SODIUM CHLORIDE [Concomitant]

REACTIONS (9)
  - SEPSIS [None]
  - HYPOTENSION [None]
  - DISSEMINATED INTRAVASCULAR COAGULATION [None]
  - DEMENTIA [None]
  - MUSCLE SPASMS [None]
  - HYPONATRAEMIA [None]
  - RESPIRATORY FAILURE [None]
  - URINARY TRACT INFECTION [None]
  - DISEASE COMPLICATION [None]
